FAERS Safety Report 21416275 (Version 1)
Quarter: 2022Q4

REPORT INFORMATION
  Report Type: Other
  Country: GB (occurrence: GB)
  Receive Date: 20221006
  Receipt Date: 20221006
  Transmission Date: 20230113
  Serious: No
  Sender: FDA-Public Use
  Company Number: None

PATIENT
  Age: 82 Year
  Sex: Male
  Weight: 66 kg

DRUGS (17)
  1. SERTRALINE HYDROCHLORIDE [Suspect]
     Active Substance: SERTRALINE HYDROCHLORIDE
     Indication: Depressed mood
     Dosage: UNK
     Route: 048
  2. ALENDRONIC ACID [Concomitant]
     Active Substance: ALENDRONIC ACID
     Indication: Osteoporosis
     Dosage: 1 DOSAGE FORM ONCE A WEEK
     Route: 065
     Dates: start: 20220907, end: 20220907
  3. ALENDRONIC ACID [Concomitant]
     Active Substance: ALENDRONIC ACID
     Dosage: 1 DOSAGE FORM ONCE A WEEK
     Route: 065
     Dates: start: 20220907
  4. BISOPROLOL [Concomitant]
     Active Substance: BISOPROLOL
     Indication: Product used for unknown indication
     Dosage: 1 DOSAGE FORM, QD
     Route: 065
     Dates: start: 20220823
  5. EPLERENONE [Concomitant]
     Active Substance: EPLERENONE
     Indication: Cardiac disorder
     Dosage: 1 DOSAGE FORM, QD
     Dates: start: 20220907
  6. EPLERENONE [Concomitant]
     Active Substance: EPLERENONE
     Dosage: 1 DOSAGE FORM, QD
     Route: 065
     Dates: start: 20220907, end: 20220907
  7. FUROSEMIDE [Concomitant]
     Active Substance: FUROSEMIDE
     Indication: Product used for unknown indication
     Dosage: 1 DOSAGE FORM, QD FOR HF
     Route: 065
     Dates: start: 20220727
  8. FUROSEMIDE [Concomitant]
     Active Substance: FUROSEMIDE
     Dosage: 1 DOSAGE FORM, BID FOR HF
     Route: 065
     Dates: start: 20220727, end: 20220816
  9. FUROSEMIDE [Concomitant]
     Active Substance: FUROSEMIDE
     Dosage: 1 DOSAGE FORM, BID FOR HF
     Route: 065
     Dates: start: 20220816
  10. FUROSEMIDE [Concomitant]
     Active Substance: FUROSEMIDE
     Dosage: 1 DOSAGE FORM, BID FOR HF
     Route: 065
     Dates: start: 20220816, end: 20220825
  11. FUROSEMIDE [Concomitant]
     Active Substance: FUROSEMIDE
     Dosage: 1 DOSAGE FORM, QD IN THE MORNING FOR HF
     Route: 065
     Dates: start: 20220907
  12. LANSOPRAZOLE [Concomitant]
     Active Substance: LANSOPRAZOLE
     Indication: Product used for unknown indication
     Dosage: 1 DOSAGE FORM, QD (GASTRO-RESISTANT CAPSULES)
     Route: 065
     Dates: start: 20220816
  13. LANSOPRAZOLE [Concomitant]
     Active Substance: LANSOPRAZOLE
     Dosage: 1 DOSAGE FORM, QD (GASTRO-RESISTANT CAPSULES)
     Route: 065
     Dates: start: 20220816, end: 20220907
  14. LANSOPRAZOLE [Concomitant]
     Active Substance: LANSOPRAZOLE
     Dosage: 1 DOSAGE FORM, QD (GASTRO-RESISTANT CAPSULES)
     Route: 065
     Dates: start: 20220907
  15. LANSOPRAZOLE [Concomitant]
     Active Substance: LANSOPRAZOLE
     Dosage: 1 DOSAGE FORM, QD (GASTRO-RESISTANT CAPSULES)
     Route: 065
     Dates: start: 20220907, end: 20220907
  16. LOSARTAN [Concomitant]
     Active Substance: LOSARTAN
     Indication: Proteinuria
     Dosage: 1 DOSAGE FORM, QD
     Route: 065
     Dates: start: 20220901
  17. LOSARTAN [Concomitant]
     Active Substance: LOSARTAN
     Dosage: 1 DOSAGE FORM, QD
     Route: 065
     Dates: start: 20220901, end: 20220907

REACTIONS (1)
  - Nausea [Recovered/Resolved]

NARRATIVE: CASE EVENT DATE: 20220915
